FAERS Safety Report 8870491 (Version 2)
Quarter: 2013Q1

REPORT INFORMATION
  Report Type: Spontaneous
  Country: US (occurrence: US)
  Receive Date: 20121029
  Receipt Date: 20130226
  Transmission Date: 20140127
  Serious: Yes (Hospitalization)
  Sender: FDA-Public Use
  Company Number: US-BIOGENIDEC-2012BI047216

PATIENT
  Sex: Female

DRUGS (1)
  1. TYSABRI [Suspect]
     Indication: MULTIPLE SCLEROSIS
     Route: 042
     Dates: start: 20110623

REACTIONS (4)
  - Pancreatitis [Recovered/Resolved]
  - Cholelithiasis obstructive [Not Recovered/Not Resolved]
  - Biliary neoplasm [Not Recovered/Not Resolved]
  - Multiple sclerosis relapse [Recovered/Resolved]
